FAERS Safety Report 9057273 (Version 1)
Quarter: 2013Q1

REPORT INFORMATION
  Report Type: Report from Study
  Country: JP (occurrence: JP)
  Receive Date: 20130131
  Receipt Date: 20130131
  Transmission Date: 20140127
  Serious: Yes (Other)
  Sender: FDA-Public Use
  Company Number: JP-GLAXOSMITHKLINE-B0860320A

PATIENT
  Age: 57 None
  Sex: Female
  Weight: 39 kg

DRUGS (11)
  1. TYKERB [Suspect]
     Indication: BREAST CANCER
     Route: 048
     Dates: start: 20100828, end: 20110826
  2. XELODA [Suspect]
     Route: 048
     Dates: start: 20100828, end: 20101029
  3. XELODA [Suspect]
     Route: 048
     Dates: start: 20101120, end: 20110121
  4. XELODA [Suspect]
     Route: 048
     Dates: start: 20110226, end: 20110318
  5. XELODA [Suspect]
     Route: 048
     Dates: start: 20110409, end: 20110527
  6. XELODA [Suspect]
     Route: 048
     Dates: start: 20110618, end: 20110805
  7. PREDONINE [Concomitant]
     Indication: RADIATION PNEUMONITIS
     Route: 048
     Dates: start: 20100717
  8. MYSLEE [Concomitant]
     Indication: INSOMNIA
     Route: 048
     Dates: end: 20110616
  9. MUCOSTA [Concomitant]
     Indication: PROPHYLAXIS
     Route: 048
     Dates: start: 20100717
  10. LOPEMIN [Concomitant]
     Indication: PROPHYLAXIS AGAINST DIARRHOEA
     Route: 048
     Dates: start: 20100717
  11. LENDORMIN [Concomitant]
     Indication: INSOMNIA
     Route: 048
     Dates: start: 20110617

REACTIONS (5)
  - Osteomyelitis [Recovered/Resolved]
  - Palmar-plantar erythrodysaesthesia syndrome [Recovered/Resolved]
  - Constipation [Not Recovered/Not Resolved]
  - Nausea [Recovered/Resolved]
  - Dermatitis [Recovered/Resolved]
